FAERS Safety Report 8189823-3 (Version None)
Quarter: 2012Q1

REPORT INFORMATION
  Report Type: 
  Country: None (occurrence: None)
  Receive Date: 20120307
  Receipt Date: 20110818
  Transmission Date: 20120608
  Serious: No
  Sender: FDA-Public Use
  Company Number: US-GLAXOSMITHKLINE-A0941552A

PATIENT
  Sex: Female

DRUGS (11)
  1. HYDROCODONE BITARTRATE [Concomitant]
  2. REQUIP [Suspect]
     Indication: RESTLESS LEGS SYNDROME
     Dosage: 2MG VARIABLE DOSE
     Route: 048
  3. VISTARIL [Concomitant]
  4. LAMICTAL [Concomitant]
  5. HYDROCHLOROTHIAZIDE [Concomitant]
  6. NUVIGIL [Concomitant]
  7. BENAZEPRIL HYDROCHLORIDE [Concomitant]
  8. CYCLOBENZAPRINE [Concomitant]
  9. CYMBALTA [Concomitant]
  10. MELOXICAM [Concomitant]
  11. HORIZANT [Concomitant]

REACTIONS (1)
  - RESTLESS LEGS SYNDROME [None]
